FAERS Safety Report 20317947 (Version 1)
Quarter: 2022Q1

REPORT INFORMATION
  Report Type: Spontaneous
  Country: ES (occurrence: None)
  Receive Date: 20220108
  Receipt Date: 20220108
  Transmission Date: 20220423
  Serious: Yes (Other)
  Sender: FDA-Public Use
  Company Number: None

PATIENT
  Age: 70 Year
  Sex: Male
  Weight: 75 kg

DRUGS (1)
  1. AMANTADINE [Suspect]
     Active Substance: AMANTADINE

REACTIONS (3)
  - Gait disturbance [None]
  - Dyskinesia [None]
  - Muscle spasms [None]

NARRATIVE: CASE EVENT DATE: 20211210
